FAERS Safety Report 14518605 (Version 2)
Quarter: 2018Q1

REPORT INFORMATION
  Report Type: Spontaneous
  Country: US (occurrence: US)
  Receive Date: 20180212
  Receipt Date: 20180227
  Transmission Date: 20180509
  Serious: No
  Sender: FDA-Public Use
  Company Number: US-009507513-1801USA014759

PATIENT
  Sex: Female
  Weight: 90.7 kg

DRUGS (1)
  1. NEXPLANON [Suspect]
     Active Substance: ETONOGESTREL
     Dosage: 1 IMPLANT, UNK
     Route: 059
     Dates: start: 20180123, end: 20180123

REACTIONS (3)
  - No adverse event [Unknown]
  - Complication of device insertion [Unknown]
  - Product quality issue [Unknown]

NARRATIVE: CASE EVENT DATE: 20180123
